FAERS Safety Report 5831011-7 (Version None)
Quarter: 2008Q3

REPORT INFORMATION
  Report Type: 
  Country: None (occurrence: None)
  Receive Date: 20080801
  Receipt Date: 20080310
  Transmission Date: 20090109
  Serious: No
  Sender: FDA-Public Use
  Company Number: US-BRISTOL-MYERS SQUIBB COMPANY-14109391

PATIENT
  Age: 80 Year

DRUGS (6)
  1. WARFARIN SODIUM [Suspect]
  2. PRILOSEC [Concomitant]
  3. CALCIUM [Concomitant]
  4. ESTRADIOL [Concomitant]
  5. LIDODERM [Concomitant]
  6. ATARAX [Concomitant]

REACTIONS (1)
  - RASH PRURITIC [None]
